FAERS Safety Report 8969386 (Version 1)
Quarter: 2012Q4

REPORT INFORMATION
  Report Type: 
  Country: US (occurrence: US)
  Receive Date: 20121218
  Receipt Date: 20121218
  Transmission Date: 20130627
  Serious: No
  Sender: FDA-Public Use
  Company Number: US-BRISTOL-MYERS SQUIBB COMPANY-16631293

PATIENT
  Age: 54 Year
  Sex: Male
  Weight: 82 kg

DRUGS (4)
  1. ABILIFY TABS 5 MG [Suspect]
     Indication: DEPRESSION
     Dates: start: 20120501
  2. ABILIFY TABS 5 MG [Suspect]
     Indication: OBSESSIVE-COMPULSIVE PERSONALITY DISORDER
     Dates: start: 20120501
  3. VENLAFAXINE HYDROCHLORIDE [Concomitant]
     Dosage: Extended Release
  4. NEXIUM [Concomitant]

REACTIONS (1)
  - Constipation [Unknown]
